FAERS Safety Report 19649218 (Version 2)
Quarter: 2021Q3

REPORT INFORMATION
  Report Type: Spontaneous
  Country: US (occurrence: US)
  Receive Date: 20210802
  Receipt Date: 20210906
  Transmission Date: 20211014
  Serious: Yes (Other)
  Sender: FDA-Public Use
  Company Number: US-AMGEN-USASP2021115796

PATIENT
  Age: 72 Year
  Sex: Female
  Weight: 104.31 kg

DRUGS (1)
  1. OTEZLA [Suspect]
     Active Substance: APREMILAST
     Indication: PSORIASIS
     Dosage: 30 MILLIGRAM, BID
     Route: 048
     Dates: start: 20200114

REACTIONS (1)
  - Invasive lobular breast carcinoma [Not Recovered/Not Resolved]

NARRATIVE: CASE EVENT DATE: 202012
